FAERS Safety Report 9312747 (Version 1)
Quarter: 2013Q2

REPORT INFORMATION
  Report Type: Spontaneous
  Country: CH (occurrence: CH)
  Receive Date: 20130528
  Receipt Date: 20130528
  Transmission Date: 20140414
  Serious: Yes (Other)
  Sender: FDA-Public Use
  Company Number: CH-MYLANLABS-2013S1010717

PATIENT
  Age: 58 Year
  Sex: Female

DRUGS (3)
  1. CISPLATIN [Suspect]
     Indication: SMALL CELL LUNG CANCER METASTATIC
     Dosage: 25MG/M2 DAYS 1-3
     Route: 065
  2. ETOPOSIDE [Suspect]
     Indication: SMALL CELL LUNG CANCER METASTATIC
     Dosage: 80MG/M2 DAYS 1-3
     Route: 065
  3. LETROZOLE [Suspect]
     Indication: HORMONE THERAPY
     Dosage: 2.5MG DAILY
     Route: 065

REACTIONS (1)
  - Cerebrovascular accident [Recovering/Resolving]
